FAERS Safety Report 13503994 (Version 1)
Quarter: 2017Q2

REPORT INFORMATION
  Report Type: Spontaneous
  Country: US (occurrence: US)
  Receive Date: 20170502
  Receipt Date: 20170502
  Transmission Date: 20170830
  Serious: Yes (Other)
  Sender: FDA-Public Use
  Company Number: None

PATIENT
  Age: 4 Year
  Sex: Male
  Weight: 17.1 kg

DRUGS (3)
  1. CHILDREN^S MULTIVITAMIN [Concomitant]
  2. MONTELUKAST [Suspect]
     Active Substance: MONTELUKAST SODIUM
     Indication: MULTIPLE ALLERGIES
     Dosage: ?          QUANTITY:1 TABLET(S);?
     Route: 048
     Dates: start: 20140415, end: 20170215
  3. ZYRTEC [Concomitant]
     Active Substance: CETIRIZINE HYDROCHLORIDE

REACTIONS (7)
  - Insomnia [None]
  - Anxiety [None]
  - Screaming [None]
  - Abnormal behaviour [None]
  - Impulse-control disorder [None]
  - Aggression [None]
  - Middle insomnia [None]

NARRATIVE: CASE EVENT DATE: 20170415
